FAERS Safety Report 25056374 (Version 1)
Quarter: 2025Q1

REPORT INFORMATION
  Report Type: Spontaneous
  Country: IN (occurrence: IN)
  Receive Date: 20250310
  Receipt Date: 20250310
  Transmission Date: 20250409
  Serious: Yes (Life-Threatening)
  Sender: HETERO
  Company Number: IN-HETERO-HET2025IN01047

PATIENT
  Age: 57 Year
  Sex: Male

DRUGS (1)
  1. LEVOFLOXACIN [Suspect]
     Active Substance: LEVOFLOXACIN
     Indication: Stenotrophomonas infection
     Route: 048

REACTIONS (1)
  - Drug resistance [Unknown]
